FAERS Safety Report 7424558-3 (Version None)
Quarter: 2011Q2

REPORT INFORMATION
  Report Type: 
  Country: None (occurrence: None)
  Receive Date: 20110419
  Receipt Date: 20110414
  Transmission Date: 20111010
  Serious: Yes (Life-Threatening, Disabling, Other)
  Sender: FDA-Public Use
  Company Number: PT-PFIZER INC-2011063864

PATIENT
  Age: 35 Year
  Sex: Female
  Weight: 53 kg

DRUGS (2)
  1. LYRICA [Suspect]
     Indication: NECK PAIN
  2. LYRICA [Suspect]
     Indication: HYPOAESTHESIA
     Dosage: 150 MG, 1X/DAY
     Route: 048
     Dates: start: 20110313, end: 20110314

REACTIONS (11)
  - VISION BLURRED [None]
  - DIZZINESS [None]
  - NAUSEA [None]
  - NECK PAIN [None]
  - HEADACHE [None]
  - FATIGUE [None]
  - HYPOAESTHESIA [None]
  - HEART RATE INCREASED [None]
  - MUSCULAR WEAKNESS [None]
  - VISUAL ACUITY REDUCED [None]
  - TREMOR [None]
